FAERS Safety Report 6611427-1 (Version None)
Quarter: 2010Q1

REPORT INFORMATION
  Report Type: 
  Country: None (occurrence: None)
  Receive Date: 20100218
  Receipt Date: 20100106
  Transmission Date: 20100710
  Serious: No
  Sender: FDA-Public Use
  Company Number: WAES 1001USA00354

PATIENT
  Sex: 0

DRUGS (1)
  1. ISENTRESS [Suspect]
     Dosage: PO
     Route: 048

REACTIONS (9)
  - ASTHENIA [None]
  - DEPRESSION [None]
  - DISORIENTATION [None]
  - DISTURBANCE IN ATTENTION [None]
  - DIZZINESS [None]
  - EXERCISE TOLERANCE DECREASED [None]
  - PANIC ATTACK [None]
  - SOMNOLENCE [None]
  - VERTIGO [None]
